FAERS Safety Report 7719428-7 (Version None)
Quarter: 2011Q3

REPORT INFORMATION
  Report Type: 
  Country: None (occurrence: None)
  Receive Date: 20110830
  Receipt Date: 20110825
  Transmission Date: 20111222
  Serious: Yes (Death, Other)
  Sender: FDA-Public Use
  Company Number: PHEH2009US10768

PATIENT
  Sex: Male

DRUGS (11)
  1. DEXAMETHASONE [Concomitant]
  2. BACTRIM [Concomitant]
  3. CYMBALTA [Concomitant]
  4. PROTONIX [Concomitant]
  5. XANAX [Concomitant]
  6. AREDIA [Suspect]
  7. OXYCODONE HCL AND ACETAMINOPHEN [Concomitant]
  8. REVLIMID [Concomitant]
  9. PROSCAR [Concomitant]
  10. ZOMETA [Suspect]
  11. NEXIUM [Concomitant]

REACTIONS (12)
  - OSTEONECROSIS OF JAW [None]
  - OSTEITIS [None]
  - MUSCULOSKELETAL DISCOMFORT [None]
  - GASTRIC ULCER [None]
  - DYSPNOEA [None]
  - GINGIVITIS [None]
  - NEOPLASM MALIGNANT [None]
  - PARAESTHESIA [None]
  - OSTEOMYELITIS [None]
  - EXPOSED BONE IN JAW [None]
  - GINGIVAL BLEEDING [None]
  - TOOTH LOSS [None]
